FAERS Safety Report 17684377 (Version 2)
Quarter: 2020Q3

REPORT INFORMATION
  Report Type: Spontaneous
  Country: FR (occurrence: FR)
  Receive Date: 20200420
  Receipt Date: 20200921
  Transmission Date: 20201102
  Serious: Yes (Death, Hospitalization)
  Sender: FDA-Public Use
  Company Number: FR-MYLANLABS-2020M1038555

PATIENT
  Age: 71 Year
  Sex: Male

DRUGS (12)
  1. ACETYLSALICYLIC ACID [Concomitant]
     Active Substance: ASPIRIN
     Indication: HYPERTENSION
     Dosage: UNK
  2. POSACONAZOLE [Concomitant]
     Active Substance: POSACONAZOLE
     Indication: INFECTION PROPHYLAXIS
     Dosage: UNK
  3. POTASSIUM CHLORIDE. [Concomitant]
     Active Substance: POTASSIUM CHLORIDE
     Indication: PROPHYLAXIS
     Dosage: UNK
  4. METOCLOPRAMIDE                     /00041902/ [Concomitant]
     Active Substance: METOCLOPRAMIDE HYDROCHLORIDE
     Indication: NAUSEA
     Dosage: UNK
  5. CIPROFLOXACIN. [Concomitant]
     Active Substance: CIPROFLOXACIN
     Indication: BACTERAEMIA
     Dosage: UNK
  6. AMPHOTERICIN B. [Concomitant]
     Active Substance: AMPHOTERICIN B
     Indication: FUNGAL INFECTION
     Dosage: UNK
  7. METFORMIN [Concomitant]
     Active Substance: METFORMIN HYDROCHLORIDE
     Indication: DIABETES MELLITUS
     Dosage: UNK
  8. GLICLAZIDE [Concomitant]
     Active Substance: GLICLAZIDE
     Indication: DIABETES MELLITUS
     Dosage: UNK
  9. AZACITIDINE. [Suspect]
     Active Substance: AZACITIDINE
     Indication: ACUTE MYELOID LEUKAEMIA
     Dosage: 18.75 MILLIGRAM/SQ. METER
     Route: 058
     Dates: start: 20200210, end: 20200319
  10. AMOXICILLIN                        /00249602/ [Concomitant]
     Active Substance: AMOXICILLIN
     Indication: BACTERAEMIA
     Dosage: UNK
  11. ENALAPRIL MALEATE. [Concomitant]
     Active Substance: ENALAPRIL MALEATE
     Indication: HYPERTENSION
     Dosage: UNK
  12. MORPHINE SULFATE ANHYDROUS [Concomitant]
     Indication: BACK PAIN
     Dosage: UNK

REACTIONS (2)
  - Acute myeloid leukaemia [Fatal]
  - General physical health deterioration [Not Recovered/Not Resolved]

NARRATIVE: CASE EVENT DATE: 20200302
